FAERS Safety Report 24695862 (Version 6)
Quarter: 2025Q3

REPORT INFORMATION
  Report Type: Report from Study
  Country: US (occurrence: US)
  Receive Date: 20241204
  Receipt Date: 20250806
  Transmission Date: 20251021
  Serious: Yes (Hospitalization, Other)
  Sender: TAKEDA
  Company Number: US-TAKEDA-2024TUS120274

PATIENT
  Sex: Female

DRUGS (5)
  1. TEDUGLUTIDE [Suspect]
     Active Substance: TEDUGLUTIDE
     Indication: Short-bowel syndrome
     Dosage: 0.34 MILLILITER, QD
  2. TEDUGLUTIDE [Suspect]
     Active Substance: TEDUGLUTIDE
     Indication: Functional gastrointestinal disorder
     Dosage: 0.43 MILLILITER, QD
     Dates: start: 202411
  3. TEDUGLUTIDE [Suspect]
     Active Substance: TEDUGLUTIDE
     Dosage: 5 GRAM, QD
  4. TEDUGLUTIDE [Suspect]
     Active Substance: TEDUGLUTIDE
  5. POTASSIUM [Suspect]
     Active Substance: POTASSIUM
     Indication: Product used for unknown indication

REACTIONS (18)
  - Urinary retention [Unknown]
  - Pulmonary oedema [Unknown]
  - Cardiac failure congestive [Not Recovered/Not Resolved]
  - Hypervolaemia [Unknown]
  - Abdominal discomfort [Unknown]
  - Weight decreased [Unknown]
  - Diarrhoea [Recovered/Resolved]
  - Frequent bowel movements [Recovered/Resolved]
  - Drug ineffective [Unknown]
  - Weight increased [Unknown]
  - Peripheral swelling [Unknown]
  - Fatigue [Unknown]
  - Gastrointestinal stoma output increased [Unknown]
  - Malaise [Not Recovered/Not Resolved]
  - Gait inability [Unknown]
  - Dyspnoea [Unknown]
  - Oedema peripheral [Unknown]
  - Abdominal pain [Unknown]
